FAERS Safety Report 7602229-8 (Version None)
Quarter: 2011Q3

REPORT INFORMATION
  Report Type: 
  Country: None (occurrence: None)
  Receive Date: 20110711
  Receipt Date: 20110701
  Transmission Date: 20111222
  Serious: Yes (Other)
  Sender: FDA-Public Use
  Company Number: US-ASTRAZENECA-2011SE31232

PATIENT
  Age: 28946 Day
  Sex: Female
  Weight: 74.4 kg

DRUGS (8)
  1. SYMBICORT [Suspect]
     Indication: BRONCHITIS
     Dosage: 160/4.5 MCG TWO PUFFS TWICE A DAY
     Route: 055
     Dates: start: 20110518, end: 20110518
  2. SYMBICORT [Suspect]
     Indication: CHRONIC OBSTRUCTIVE PULMONARY DISEASE
     Dosage: 160/4.5 MCG TWO PUFFS TWICE A DAY
     Route: 055
     Dates: start: 20110518, end: 20110518
  3. COMBIVENT [Concomitant]
  4. SPIRIVA [Concomitant]
  5. ANTIBIOTIC [Concomitant]
  6. LEVAQUIN [Concomitant]
     Indication: PNEUMONIA
     Dates: start: 20110218, end: 20110523
  7. SYMBICORT [Suspect]
     Indication: PNEUMONIA
     Dosage: 160/4.5 MCG TWO PUFFS TWICE A DAY
     Route: 055
     Dates: start: 20110518, end: 20110518
  8. SYMBICORT [Suspect]
     Indication: WHEEZING
     Dosage: 160/4.5 MCG TWO PUFFS TWICE A DAY
     Route: 055
     Dates: start: 20110518, end: 20110518

REACTIONS (4)
  - DYSPNOEA [None]
  - RASH [None]
  - PRURITUS [None]
  - FLUSHING [None]
